FAERS Safety Report 8876206 (Version 2)
Quarter: 2012Q4

REPORT INFORMATION
  Report Type: 
  Country: IT (occurrence: IT)
  Receive Date: 20121030
  Receipt Date: 20121108
  Transmission Date: 20130627
  Serious: Yes (Hospitalization)
  Sender: FDA-Public Use
  Company Number: IT-FRI-1000039748

PATIENT
  Age: 42 Year
  Sex: Female

DRUGS (4)
  1. NEBIVOLOL [Suspect]
     Indication: HYPERTENSION
     Dosage: 5 mg
     Route: 048
     Dates: end: 20121011
  2. NEBIVOLOL [Suspect]
  3. RAMIPRIL [Suspect]
     Indication: HYPERTENSION
     Dosage: 10 mg
     Route: 048
     Dates: end: 20121011
  4. RAMIPRIL [Suspect]

REACTIONS (2)
  - Hypotension [Recovered/Resolved]
  - Overdose [Recovered/Resolved]
